FAERS Safety Report 4929586-5 (Version None)
Quarter: 2006Q1

REPORT INFORMATION
  Report Type: 
  Country: None (occurrence: None)
  Receive Date: 20060224
  Receipt Date: 20060216
  Transmission Date: 20060701
  Serious: Yes (Other)
  Sender: FDA-Public Use
  Company Number: 2006024764

PATIENT
  Age: 87 Year
  Sex: Male

DRUGS (2)
  1. LYRICA [Suspect]
     Indication: POST HERPETIC NEURALGIA
     Dosage: 150 MG (75 MG, 2 IN 1  D), ORAL
     Route: 048
     Dates: start: 20060209
  2. VALTREX [Concomitant]

REACTIONS (6)
  - AMNESIA [None]
  - CONFUSIONAL STATE [None]
  - FATIGUE [None]
  - GAIT DISTURBANCE [None]
  - ROAD TRAFFIC ACCIDENT [None]
  - WALKING AID USER [None]
